FAERS Safety Report 16057986 (Version 1)
Quarter: 2019Q1

REPORT INFORMATION
  Report Type: Spontaneous
  Country: HR (occurrence: HR)
  Receive Date: 20190311
  Receipt Date: 20190311
  Transmission Date: 20190418
  Serious: Yes (Other)
  Sender: FDA-Public Use
  Company Number: HR-ELI_LILLY_AND_COMPANY-HR201902013217

PATIENT
  Age: 42 Year
  Sex: Female
  Weight: 65 kg

DRUGS (2)
  1. ZYPREXA [Suspect]
     Active Substance: OLANZAPINE
     Indication: PRODUCT USED FOR UNKNOWN INDICATION
     Dosage: 5 MG, BID
     Route: 065
     Dates: start: 20190104
  2. ZYPADHERA [Suspect]
     Active Substance: OLANZAPINE PAMOATE
     Indication: PRODUCT USED FOR UNKNOWN INDICATION
     Dosage: 300 MG, UNKNOWN
     Route: 030
     Dates: start: 20190104

REACTIONS (12)
  - Myalgia [Recovering/Resolving]
  - Chest pain [Recovering/Resolving]
  - Gait disturbance [Recovering/Resolving]
  - Poor peripheral circulation [Recovering/Resolving]
  - Dyspnoea [Recovering/Resolving]
  - Musculoskeletal stiffness [Recovering/Resolving]
  - Agitation [Recovering/Resolving]
  - Somnolence [Recovering/Resolving]
  - Bone pain [Recovering/Resolving]
  - Blood pressure decreased [Recovering/Resolving]
  - Heart rate increased [Recovering/Resolving]
  - Thrombosis [Recovering/Resolving]

NARRATIVE: CASE EVENT DATE: 20190115
